FAERS Safety Report 20754670 (Version 1)
Quarter: 2022Q2

REPORT INFORMATION
  Report Type: Spontaneous
  Country: US (occurrence: None)
  Receive Date: 20220426
  Receipt Date: 20220426
  Transmission Date: 20220720
  Serious: No
  Sender: FDA-Public Use
  Company Number: US-ROCHE-2886798

PATIENT
  Age: 63 Year
  Sex: Male

DRUGS (1)
  1. ESBRIET [Suspect]
     Active Substance: PIRFENIDONE
     Indication: Idiopathic pulmonary fibrosis
     Dosage: 267 MG THRICE A DAY FOR 1 WEEK, THEN 534 MG THRICE A DAY FOR 1 WEEK, THEN 801 MG THRICE A DAY FOR 1
     Route: 048
     Dates: start: 20210704

REACTIONS (3)
  - Dyspepsia [Unknown]
  - Fatigue [Unknown]
  - Nausea [Unknown]

NARRATIVE: CASE EVENT DATE: 20210704
